FAERS Safety Report 4368301-3 (Version None)
Quarter: 2004Q2

REPORT INFORMATION
  Report Type: 
  Country: None (occurrence: None)
  Receive Date: 20040602
  Receipt Date: 20040524
  Transmission Date: 20050107
  Serious: Yes (Hospitalization)
  Sender: FDA-Public Use
  Company Number: PHRM2004FR01914

PATIENT
  Age: 59 Year
  Sex: Female
  Weight: 52 kg

DRUGS (11)
  1. TEGRETOL [Suspect]
     Dosage: 400 MG/DAY
     Route: 048
  2. LASILIX [Suspect]
     Dosage: 40 MG/DAY
     Route: 048
  3. CELECTOL [Suspect]
     Dosage: 200 MG/DAY
     Route: 048
  4. AMLOR [Suspect]
     Dosage: 1 CAPS/DAY
     Route: 048
  5. HYPERIUM [Suspect]
     Dosage: 1 MG/DAY
     Route: 048
  6. APROVEL [Suspect]
     Dosage: 300 MG/DAY
     Route: 048
  7. OROCAL [Suspect]
     Dosage: 1.25 G/DAY
     Route: 048
  8. AMITRIPTYLINE HCL [Suspect]
     Dosage: 1 TAB/DAY
     Route: 048
  9. KAYEXALATE [Suspect]
     Dosage: 3/WEEK
     Route: 065
  10. ARANESP [Suspect]
     Dosage: 40 MG EVERY 2 WEEKS
  11. SODIUM BICARBONATE [Suspect]
     Route: 065

REACTIONS (7)
  - ANXIETY [None]
  - BLOOD CREATININE INCREASED [None]
  - BLOOD PRESSURE INCREASED [None]
  - BLOOD UREA INCREASED [None]
  - HYPERKALAEMIA [None]
  - LOSS OF CONSCIOUSNESS [None]
  - MALAISE [None]
